FAERS Safety Report 19433122 (Version 1)
Quarter: 2021Q2

REPORT INFORMATION
  Report Type: Spontaneous
  Country: US (occurrence: US)
  Receive Date: 20210617
  Receipt Date: 20210617
  Transmission Date: 20210717
  Serious: Yes (Life-Threatening, Hospitalization)
  Sender: FDA-Public Use
  Company Number: US-TEVA-2021-US-1922471

PATIENT
  Age: 67 Year
  Sex: Male

DRUGS (8)
  1. CROTALINE FAB ANTIVENOM (FABAV) [Suspect]
     Active Substance: CROTALIDAE POLYVALENT IMMUNE FAB (OVINE)
     Indication: VENOM POISONING
     Dosage: 6 VIALS
     Route: 065
  2. DEXAMETHASONE. [Suspect]
     Active Substance: DEXAMETHASONE
     Indication: ANAPHYLACTIC REACTION
     Route: 065
  3. CROTALINE FAB ANTIVENOM F(AB^)2AV [Suspect]
     Active Substance: PIT VIPER (CROTALINAE) IMMUNE GLOBULIN ANTIVENIN (EQUINE)
     Indication: VENOM POISONING
     Dosage: 34 VIALS
     Route: 065
  4. METHYLPREDNISOLONE. [Suspect]
     Active Substance: METHYLPREDNISOLONE
     Indication: ANAPHYLACTIC REACTION
     Route: 065
  5. CROTALINE FAB ANTIVENOM (FABAV) [Suspect]
     Active Substance: CROTALIDAE POLYVALENT IMMUNE FAB (OVINE)
     Dosage: 18 VIALS
     Route: 065
  6. EPINEPHRINE. [Suspect]
     Active Substance: EPINEPHRINE
     Indication: ANAPHYLACTIC REACTION
     Route: 065
  7. CROTALINE FAB ANTIVENOM F(AB^)2AV [Suspect]
     Active Substance: PIT VIPER (CROTALINAE) IMMUNE GLOBULIN ANTIVENIN (EQUINE)
     Dosage: 10 VIALS
     Route: 065
  8. NOREPINEPHRINE. [Suspect]
     Active Substance: NOREPINEPHRINE
     Indication: ANAPHYLACTIC REACTION
     Route: 065

REACTIONS (1)
  - Drug ineffective [Unknown]
